FAERS Safety Report 9393500 (Version 2)
Quarter: 2013Q4

REPORT INFORMATION
  Report Type: Spontaneous
  Country: IT (occurrence: IT)
  Receive Date: 20130710
  Receipt Date: 20131010
  Transmission Date: 20140711
  Serious: Yes (Other)
  Sender: FDA-Public Use
  Company Number: IT-TEVA-416922ISR

PATIENT
  Age: 62 Year
  Sex: Female

DRUGS (8)
  1. METFORMIN [Suspect]
     Indication: DIABETES MELLITUS
     Route: 048
     Dates: start: 20130524, end: 20130531
  2. EUTIROX 25MCG [Concomitant]
     Indication: HYPOTHYROIDISM
  3. COAPROVEL 150MG/12.5MG [Concomitant]
     Indication: HYPERTENSION
  4. CARDICOR 1.25MG [Concomitant]
  5. LANOXIN 0.0625MG [Concomitant]
  6. CALCITRIOLO [Concomitant]
  7. LANSOPRAZOLO [Concomitant]
  8. COUMADIN 5MG [Concomitant]
     Indication: ATRIAL FIBRILLATION
     Dates: start: 20120427, end: 20130531

REACTIONS (6)
  - Abdominal pain upper [Recovered/Resolved]
  - Abdominal pain [Recovered/Resolved]
  - Diarrhoea [Recovered/Resolved]
  - Nausea [Recovered/Resolved]
  - Dyspnoea [Recovered/Resolved]
  - Throat tightness [Recovered/Resolved]
